FAERS Safety Report 17394185 (Version 1)
Quarter: 2020Q1

REPORT INFORMATION
  Report Type: Spontaneous
  Country: SE (occurrence: SE)
  Receive Date: 20200210
  Receipt Date: 20200210
  Transmission Date: 20200409
  Serious: Yes (Other)
  Sender: FDA-Public Use
  Company Number: SE-SUN PHARMACEUTICAL INDUSTRIES LTD-2020RR-236022

PATIENT
  Age: 52 Year
  Sex: Male
  Weight: 105 kg

DRUGS (1)
  1. SERTRALINE [Suspect]
     Active Substance: SERTRALINE HYDROCHLORIDE
     Indication: DEPRESSION
     Dosage: 1 TABL. PA MORGON
     Route: 065
     Dates: start: 2015, end: 20190426

REACTIONS (6)
  - Withdrawal syndrome [Recovered/Resolved]
  - Mood swings [Recovered/Resolved]
  - Judgement impaired [Recovered/Resolved]
  - Insomnia [Recovered/Resolved]
  - Listless [Recovered/Resolved]
  - Personality change [Recovered/Resolved]

NARRATIVE: CASE EVENT DATE: 2019
